FAERS Safety Report 14639682 (Version 5)
Quarter: 2018Q4

REPORT INFORMATION
  Report Type: Spontaneous
  Country: US (occurrence: US)
  Receive Date: 20180315
  Receipt Date: 20181207
  Transmission Date: 20190204
  Serious: Yes (Other)
  Sender: FDA-Public Use
  Company Number: PHEH2018US010103

PATIENT
  Age: 68 Year
  Sex: Male

DRUGS (2)
  1. AFINITOR [Suspect]
     Active Substance: EVEROLIMUS
     Indication: RENAL CANCER
     Dosage: 5 MG, QD
     Route: 048
  2. LENVATINIB [Suspect]
     Active Substance: LENVATINIB
     Indication: RENAL CANCER
     Dosage: 18 MG, QD
     Route: 048
     Dates: start: 20180203

REACTIONS (9)
  - Rash macular [Recovering/Resolving]
  - Diarrhoea [Recovering/Resolving]
  - Malaise [Recovered/Resolved]
  - Renal cancer [Unknown]
  - Malignant neoplasm progression [Unknown]
  - Feeding disorder [Recovered/Resolved]
  - Pruritus [Recovering/Resolving]
  - White blood cell count decreased [Recovered/Resolved]
  - Pigmentation disorder [Recovering/Resolving]

NARRATIVE: CASE EVENT DATE: 201802
